FAERS Safety Report 21535310 (Version 1)
Quarter: 2022Q4

REPORT INFORMATION
  Report Type: Spontaneous
  Country: US (occurrence: US)
  Receive Date: 20221101
  Receipt Date: 20221101
  Transmission Date: 20230113
  Serious: No
  Sender: FDA-Public Use
  Company Number: US-MIGRATION_PFIZER-2022BHV002038

PATIENT
  Age: 74 Year
  Sex: Female

DRUGS (6)
  1. NURTEC ODT [Suspect]
     Active Substance: RIMEGEPANT SULFATE
     Indication: Migraine
     Dosage: DOSE/AMOUNT: 1 TABLET; TOOK ONE TABLET PER WEEK FOR 3 WEEKS IN A ROW (1 DOSE ON 01MAR, 08MAR, 17MAR2
     Route: 065
     Dates: start: 20220301, end: 20220317
  2. NURTEC ODT [Suspect]
     Active Substance: RIMEGEPANT SULFATE
     Route: 065
  3. ESGIC [Concomitant]
     Active Substance: ACETAMINOPHEN\BUTALBITAL\CAFFEINE
     Indication: Migraine
     Route: 065
     Dates: start: 202201
  4. XANAX [Concomitant]
     Active Substance: ALPRAZOLAM
     Indication: Product used for unknown indication
     Route: 065
  5. REMERON [Concomitant]
     Active Substance: MIRTAZAPINE
     Indication: Product used for unknown indication
     Route: 065
  6. Isometheptene (old Midrin) [Concomitant]
     Indication: Product used for unknown indication
     Route: 065

REACTIONS (2)
  - Headache [Recovered/Resolved]
  - Feeling abnormal [Recovered/Resolved]

NARRATIVE: CASE EVENT DATE: 20220101
